FAERS Safety Report 7560728-1 (Version None)
Quarter: 2011Q2

REPORT INFORMATION
  Report Type: 
  Country: None (occurrence: None)
  Receive Date: 20110621
  Receipt Date: 20110606
  Transmission Date: 20111010
  Serious: Yes (Hospitalization)
  Sender: FDA-Public Use
  Company Number: US-WATSON-2011-08312

PATIENT
  Age: 20 Year
  Sex: Female

DRUGS (1)
  1. ZONISAMIDE [Suspect]
     Indication: INTENTIONAL OVERDOSE
     Dosage: 8.7 G, SINGLE
     Route: 048

REACTIONS (7)
  - CONVULSION [None]
  - INTENTIONAL OVERDOSE [None]
  - NAUSEA [None]
  - DIZZINESS [None]
  - HEADACHE [None]
  - CHEST PAIN [None]
  - VISION BLURRED [None]
